FAERS Safety Report 4310023-9 (Version None)
Quarter: 2004Q1

REPORT INFORMATION
  Report Type: 
  Country: None (occurrence: None)
  Receive Date: 20040227
  Receipt Date: 20031205
  Transmission Date: 20041129
  Serious: No
  Sender: FDA-Public Use
  Company Number: FABR-10399

PATIENT
  Age: 55 Year
  Sex: Male

DRUGS (1)
  1. FABRAZYME [Suspect]
     Indication: FABRY'S DISEASE
     Dosage: 86 MG Q2WKS IV
     Route: 042
     Dates: start: 20030101

REACTIONS (3)
  - CHILLS [None]
  - FEELING COLD [None]
  - HYPERTENSION [None]
